FAERS Safety Report 16055670 (Version 1)
Quarter: 2019Q1

REPORT INFORMATION
  Report Type: Spontaneous
  Country: US (occurrence: US)
  Receive Date: 20190311
  Receipt Date: 20190311
  Transmission Date: 20190418
  Serious: Yes (Other)
  Sender: FDA-Public Use
  Company Number: US-HIKMA PHARMACEUTICALS USA INC.-US-H14001-19-01428

PATIENT
  Age: 22 Year
  Sex: Male

DRUGS (3)
  1. BROMOCRIPTINE [Concomitant]
     Active Substance: BROMOCRIPTINE
     Indication: NEUROLEPTIC MALIGNANT SYNDROME
     Route: 065
  2. ZOLPIDEM [Concomitant]
     Active Substance: ZOLPIDEM\ZOLPIDEM TARTRATE
     Indication: PRODUCT USED FOR UNKNOWN INDICATION
  3. BENZTROPINE. [Suspect]
     Active Substance: BENZTROPINE
     Indication: MUSCLE RIGIDITY
     Route: 042

REACTIONS (2)
  - Urinary tract infection [Unknown]
  - Urinary retention [Unknown]
